FAERS Safety Report 16890187 (Version 1)
Quarter: 2019Q4

REPORT INFORMATION
  Report Type: Spontaneous
  Country: US (occurrence: US)
  Receive Date: 20191003
  Receipt Date: 20191003
  Transmission Date: 20200122
  Serious: No
  Sender: FDA-Public Use
  Company Number: None

PATIENT
  Age: 37 Year
  Sex: Female
  Weight: 64.8 kg

DRUGS (1)
  1. NATURE^S SMILE NATURAL GUM BALM [Suspect]
     Active Substance: HERBALS
     Indication: GINGIVAL RECESSION
     Dates: start: 20190916, end: 20190930

REACTIONS (2)
  - Nausea [None]
  - Treatment failure [None]

NARRATIVE: CASE EVENT DATE: 20191002
